FAERS Safety Report 15684873 (Version 1)
Quarter: 2018Q4

REPORT INFORMATION
  Report Type: Spontaneous
  Country: US (occurrence: US)
  Receive Date: 20181121
  Receipt Date: 20181121
  Transmission Date: 20190205
  Serious: No
  Sender: FDA-Public Use
  Company Number: None

PATIENT
  Age: 74 Year

DRUGS (1)
  1. ENBREL [Suspect]
     Active Substance: ETANERCEPT
     Indication: RHEUMATOID ARTHRITIS
     Dates: start: 20180622

REACTIONS (4)
  - Pruritus [None]
  - Oral surgery [None]
  - Oral herpes [None]
  - Therapy cessation [None]

NARRATIVE: CASE EVENT DATE: 20181114
